FAERS Safety Report 9587216 (Version 3)
Quarter: 2013Q4

REPORT INFORMATION
  Report Type: Spontaneous
  Country: JP (occurrence: JP)
  Receive Date: 20131003
  Receipt Date: 20131023
  Transmission Date: 20140711
  Serious: Yes (Hospitalization)
  Sender: FDA-Public Use
  Company Number: JP-GLAXOSMITHKLINE-B0925834A

PATIENT
  Age: 79 Year
  Sex: Female

DRUGS (4)
  1. VALTREX [Suspect]
     Indication: GENITAL HERPES
     Dosage: 1000MG TWICE PER DAY
     Route: 048
     Dates: start: 20080815, end: 20080824
  2. BAKTAR [Concomitant]
     Dosage: 1IUAX PER DAY
     Route: 048
     Dates: start: 20080722, end: 20080826
  3. PREDNISOLONE [Concomitant]
     Indication: MICROSCOPIC POLYANGIITIS
     Route: 048
  4. TAKEPRON [Concomitant]
     Dosage: 1IUAX PER DAY
     Route: 048
     Dates: start: 20080721, end: 20080826

REACTIONS (1)
  - Agranulocytosis [Recovered/Resolved]
